FAERS Safety Report 21132307 (Version 6)
Quarter: 2024Q3

REPORT INFORMATION
  Report Type: Spontaneous
  Country: US (occurrence: US)
  Receive Date: 20220726
  Receipt Date: 20240722
  Transmission Date: 20241017
  Serious: No
  Sender: CSL BEHRING
  Company Number: US-BEH-2022147645

PATIENT
  Age: 90 Year
  Sex: Female

DRUGS (12)
  1. HUMATE-P [Suspect]
     Active Substance: HUMAN COAGULATION FACTOR VIII/VON WILLEBRAND FACTOR COMPLEX
     Indication: Von Willebrand^s disease
     Dosage: 2100 INTERNATIONAL UNIT, TIW
     Route: 042
     Dates: start: 20211123
  2. HUMATE-P [Suspect]
     Active Substance: HUMAN COAGULATION FACTOR VIII/VON WILLEBRAND FACTOR COMPLEX
     Indication: Factor VIII deficiency
     Dosage: 2100 INTERNATIONAL UNIT, TIW
     Route: 042
     Dates: start: 20220512
  3. HUMATE-P [Suspect]
     Active Substance: HUMAN COAGULATION FACTOR VIII/VON WILLEBRAND FACTOR COMPLEX
     Indication: Prophylaxis
     Dosage: 2100 INTERNATIONAL UNIT, PRN
     Route: 042
  4. HUMATE-P [Suspect]
     Active Substance: HUMAN COAGULATION FACTOR VIII/VON WILLEBRAND FACTOR COMPLEX
     Indication: Haemorrhage
     Dosage: 4200 INTERNATIONAL UNIT, PRN
     Route: 042
  5. HUMATE-P [Suspect]
     Active Substance: HUMAN COAGULATION FACTOR VIII/VON WILLEBRAND FACTOR COMPLEX
     Indication: Haemorrhage
     Dosage: 2100 INTERNATIONAL UNIT, SINGLE
     Route: 042
     Dates: start: 2022
  6. HUMATE-P [Suspect]
     Active Substance: HUMAN COAGULATION FACTOR VIII/VON WILLEBRAND FACTOR COMPLEX
     Dosage: 2147 INTERNATIONAL UNIT, TIW
     Route: 042
     Dates: start: 202111
  7. HUMATE-P [Suspect]
     Active Substance: HUMAN COAGULATION FACTOR VIII/VON WILLEBRAND FACTOR COMPLEX
     Dosage: 2147 INTERNATIONAL UNIT, PRN
     Route: 042
     Dates: start: 202111
  8. HUMATE-P [Suspect]
     Active Substance: HUMAN COAGULATION FACTOR VIII/VON WILLEBRAND FACTOR COMPLEX
     Dosage: 4293 INTERNATIONAL UNIT, PRN
     Route: 042
     Dates: start: 202111
  9. HUMATE-P [Suspect]
     Active Substance: HUMAN COAGULATION FACTOR VIII/VON WILLEBRAND FACTOR COMPLEX
     Dosage: 4295 INTERNATIONAL UNIT, PRN
     Route: 042
     Dates: start: 202111
  10. HUMATE-P [Suspect]
     Active Substance: HUMAN COAGULATION FACTOR VIII/VON WILLEBRAND FACTOR COMPLEX
     Dosage: 2248 IU, TIW
     Route: 042
     Dates: start: 202111
  11. HUMATE-P [Suspect]
     Active Substance: HUMAN COAGULATION FACTOR VIII/VON WILLEBRAND FACTOR COMPLEX
     Dosage: 2248 IU, PRN
     Route: 042
     Dates: start: 202111
  12. HUMATE-P [Suspect]
     Active Substance: HUMAN COAGULATION FACTOR VIII/VON WILLEBRAND FACTOR COMPLEX
     Dosage: 4495 IU, PRN
     Route: 042
     Dates: start: 202111

REACTIONS (6)
  - Epistaxis [Recovered/Resolved]
  - Epistaxis [Recovered/Resolved]
  - Epistaxis [Recovered/Resolved]
  - Epistaxis [Unknown]
  - Confusional state [Unknown]
  - Epistaxis [Recovered/Resolved]

NARRATIVE: CASE EVENT DATE: 20220101
